FAERS Safety Report 8226332-7 (Version None)
Quarter: 2012Q1

REPORT INFORMATION
  Report Type: 
  Country: None (occurrence: None)
  Receive Date: 20120321
  Receipt Date: 20120313
  Transmission Date: 20120608
  Serious: Yes (Other)
  Sender: FDA-Public Use
  Company Number: FR-ROCHE-1048851

PATIENT
  Age: 84 Year
  Sex: Female
  Weight: 67 kg

DRUGS (4)
  1. STABLON [Concomitant]
     Indication: PRODUCT USED FOR UNKNOWN INDICATION
  2. METFORMIN HCL [Concomitant]
  3. XELODA [Suspect]
     Indication: PRODUCT USED FOR UNKNOWN INDICATION
  4. INSULIN [Concomitant]

REACTIONS (5)
  - METABOLIC DISORDER [None]
  - DYSPNOEA [None]
  - PRURITUS [None]
  - FATIGUE [None]
  - ERYTHEMA [None]
